FAERS Safety Report 24933377 (Version 1)
Quarter: 2025Q1

REPORT INFORMATION
  Report Type: Spontaneous
  Country: DE (occurrence: DE)
  Receive Date: 20250206
  Receipt Date: 20250206
  Transmission Date: 20250409
  Serious: Yes (Hospitalization, Other)
  Sender: Haleon PLC
  Company Number: DE-EMA-DD-20240715-7482677-084326

PATIENT
  Age: 63 Year
  Sex: Male
  Weight: 65 kg

DRUGS (33)
  1. ACETAMINOPHEN [Suspect]
     Active Substance: ACETAMINOPHEN
     Indication: Pyrexia
     Route: 054
     Dates: start: 19981108, end: 19981109
  2. NITROGLYCERIN [Suspect]
     Active Substance: NITROGLYCERIN
     Indication: Angina pectoris
     Route: 048
     Dates: start: 19981107, end: 19981107
  3. ISOSORBIDE DINITRATE [Suspect]
     Active Substance: ISOSORBIDE DINITRATE
     Indication: Coronary artery disease
     Route: 048
     Dates: start: 19981108
  4. NITROGLYCERIN [Suspect]
     Active Substance: NITROGLYCERIN
     Indication: Angina pectoris
     Route: 048
     Dates: start: 19981109
  5. ISMN BASICS (ISOSORBIDE MONONITRATE) [Concomitant]
     Indication: Coronary artery disease
     Route: 048
     Dates: end: 19981106
  6. INSULIN NOS [Concomitant]
     Active Substance: INSULIN NOS
     Indication: Diabetes mellitus
     Route: 058
  7. ALLOPURINOL [Suspect]
     Active Substance: ALLOPURINOL
     Indication: Hyperuricaemia
     Route: 048
     Dates: start: 19980925, end: 19981106
  8. PANTOZOL [Suspect]
     Active Substance: PANTOPRAZOLE SODIUM
     Indication: Gastric ulcer
     Route: 048
     Dates: start: 19981107
  9. MOLSIDOMIN (MOLSIDOMINE) [Concomitant]
     Indication: Coronary artery disease
     Route: 048
     Dates: end: 19981106
  10. DIAZEPAM [Suspect]
     Active Substance: DIAZEPAM
     Indication: Restlessness
     Route: 048
     Dates: start: 19981107, end: 19981107
  11. ACETYLCYSTEINE [Suspect]
     Active Substance: ACETYLCYSTEINE
     Indication: Cough
     Dosage: DROPS 20
     Route: 048
     Dates: start: 19981109, end: 19981109
  12. MOLSIDOMINE [Suspect]
     Active Substance: MOLSIDOMINE
     Indication: Coronary artery disease
     Route: 048
     Dates: start: 19981108
  13. ACETYLCYSTEINE [Suspect]
     Active Substance: ACETYLCYSTEINE
     Indication: Mucosal inflammation
     Route: 048
     Dates: start: 19981108
  14. METOCLOPRAMIDE [Suspect]
     Active Substance: METOCLOPRAMIDE
     Indication: Illness
     Route: 042
     Dates: start: 19981107, end: 19981107
  15. AQUAPHOR (AQUAPHOR) [Concomitant]
     Indication: Hypertension
     Route: 048
     Dates: end: 19981106
  16. FUROSEMIDE [Suspect]
     Active Substance: FUROSEMIDE
     Indication: Oedema
     Dosage: TAB 2
     Route: 048
     Dates: end: 19981106
  17. NITROGLYCERIN [Suspect]
     Active Substance: NITROGLYCERIN
     Indication: Angina pectoris
     Route: 042
     Dates: start: 19981107, end: 19981108
  18. FLUVASTATIN SODIUM [Suspect]
     Active Substance: FLUVASTATIN SODIUM
     Indication: Hypercholesterolaemia
     Route: 048
     Dates: start: 19981023, end: 19981106
  19. LASIX [Suspect]
     Active Substance: FUROSEMIDE
     Indication: Coronary artery insufficiency
     Route: 042
     Dates: start: 19981107, end: 19981107
  20. MORPHINE [Suspect]
     Active Substance: MORPHINE
     Indication: Pain
     Route: 042
     Dates: start: 19981107, end: 19981107
  21. AQUAPHOR (AQUAPHOR) [Concomitant]
     Indication: Product used for unknown indication
     Route: 048
     Dates: start: 19981108
  22. HEPARIN SODIUM [Suspect]
     Active Substance: HEPARIN SODIUM
     Indication: Thrombosis
     Route: 042
     Dates: start: 19981107, end: 19981109
  23. METOCLOPRAMIDE [Suspect]
     Active Substance: METOCLOPRAMIDE
     Indication: Illness
     Route: 048
     Dates: end: 19981106
  24. URAPIDIL [Suspect]
     Active Substance: URAPIDIL
     Indication: Angina pectoris
     Route: 042
     Dates: start: 19981107, end: 19981107
  25. QUERTO (CARVEDILOL) [Concomitant]
     Indication: Hypertension
     Route: 048
  26. NOVALGIN (METAMIZOLE SODIUM) [Suspect]
     Active Substance: METAMIZOLE SODIUM
     Indication: Pain
     Route: 048
     Dates: start: 19981107, end: 19981107
  27. ASPIRIN [Suspect]
     Active Substance: ASPIRIN
     Indication: Coronary artery disease
     Route: 048
  28. FUROSEMIDE [Suspect]
     Active Substance: FUROSEMIDE
     Indication: Coronary artery insufficiency
     Route: 042
  29. ACTRAPID [Suspect]
     Active Substance: INSULIN HUMAN
     Indication: Diabetes mellitus
     Route: 042
     Dates: start: 19981107, end: 19981107
  30. AMOXICILLIN [Suspect]
     Active Substance: AMOXICILLIN
     Indication: Bronchitis
     Route: 048
     Dates: start: 19981107
  31. HEPARIN SODIUM [Suspect]
     Active Substance: HEPARIN SODIUM
     Indication: Thrombosis
     Route: 058
     Dates: start: 19981107, end: 19981107
  32. FUROSEMIDE [Suspect]
     Active Substance: FUROSEMIDE
     Indication: Product used for unknown indication
     Route: 048
     Dates: start: 19981107
  33. ASPIRIN DL-LYSINE [Suspect]
     Active Substance: ASPIRIN DL-LYSINE
     Indication: Angina pectoris
     Route: 042
     Dates: start: 19981107, end: 19981107

REACTIONS (12)
  - Stevens-Johnson syndrome [Recovered/Resolved]
  - Pruritus [Unknown]
  - Blood urea increased [Unknown]
  - Pyrexia [Unknown]
  - Rash [Unknown]
  - Skin disorder [Unknown]
  - Leukocytosis [Unknown]
  - Pruritus [Unknown]
  - Ocular hyperaemia [Unknown]
  - Blood creatinine increased [Unknown]
  - Oral mucosal eruption [Unknown]
  - Erythema multiforme [Recovered/Resolved]

NARRATIVE: CASE EVENT DATE: 19981108
